FAERS Safety Report 8319222-2 (Version None)
Quarter: 2012Q2

REPORT INFORMATION
  Report Type: 
  Country: None (occurrence: None)
  Receive Date: 20120427
  Receipt Date: 20120419
  Transmission Date: 20120825
  Serious: Yes (Hospitalization, Disabling, Other)
  Sender: FDA-Public Use
  Company Number: US-MERCK-1107USA02915

PATIENT
  Age: 67 Year
  Sex: Female

DRUGS (5)
  1. FOSAMAX [Suspect]
     Indication: OSTEOPOROSIS
     Route: 048
     Dates: start: 20020101, end: 20090101
  2. FOSAMAX [Suspect]
     Route: 048
     Dates: start: 20020819, end: 20030101
  3. FOSAMAX [Suspect]
     Route: 048
     Dates: start: 20080601
  4. ALENDRONATE SODIUM [Suspect]
     Route: 048
     Dates: start: 20080901, end: 20080101
  5. FOSAMAX [Suspect]
     Route: 048
     Dates: start: 20030101

REACTIONS (72)
  - HYPOGLYCAEMIA [None]
  - JAW DISORDER [None]
  - PNEUMONIA [None]
  - WEIGHT DECREASED [None]
  - ABDOMINAL PAIN UPPER [None]
  - BLOOD GLUCOSE ABNORMAL [None]
  - OSTEONECROSIS OF JAW [None]
  - SEPTIC SHOCK [None]
  - SEPSIS [None]
  - RENAL FAILURE ACUTE [None]
  - LEUKOCYTOSIS [None]
  - EXOSTOSIS [None]
  - NAUSEA [None]
  - HAEMORRHOIDS [None]
  - BRONCHITIS [None]
  - CHEILITIS [None]
  - ROAD TRAFFIC ACCIDENT [None]
  - ROTATOR CUFF SYNDROME [None]
  - GASTRITIS [None]
  - DRUG INTOLERANCE [None]
  - DIARRHOEA [None]
  - DEPRESSION [None]
  - MUSCLE STRAIN [None]
  - OSTEORADIONECROSIS [None]
  - ALOPECIA [None]
  - GINGIVITIS [None]
  - FOLATE DEFICIENCY [None]
  - ALCOHOL ABUSE [None]
  - BRAIN NATRIURETIC PEPTIDE INCREASED [None]
  - GLOSSODYNIA [None]
  - DIVERTICULUM [None]
  - ORAL DISORDER [None]
  - SPINAL COLUMN STENOSIS [None]
  - GASTROINTESTINAL TRACT ADENOMA [None]
  - FALL [None]
  - THORACIC VERTEBRAL FRACTURE [None]
  - ABSCESS [None]
  - TOOTH IMPACTED [None]
  - ORAL TORUS [None]
  - LEUKOPLAKIA ORAL [None]
  - JOINT INJURY [None]
  - CARDITIS [None]
  - BOWEN'S DISEASE [None]
  - LIVER FUNCTION TEST ABNORMAL [None]
  - SYSTEMIC INFLAMMATORY RESPONSE SYNDROME [None]
  - HYPOTENSION [None]
  - BONE DISORDER [None]
  - SCIATICA [None]
  - PEPTIC ULCER [None]
  - PAIN IN EXTREMITY [None]
  - NEUROPATHY PERIPHERAL [None]
  - IMPAIRED HEALING [None]
  - CACHEXIA [None]
  - CRANIOCEREBRAL INJURY [None]
  - OSTEONECROSIS [None]
  - ACTINOMYCOSIS [None]
  - CONSTIPATION [None]
  - TOOTH FRACTURE [None]
  - TONGUE DISCOLOURATION [None]
  - SEASONAL ALLERGY [None]
  - IRON DEFICIENCY ANAEMIA [None]
  - APPENDIX DISORDER [None]
  - HEAD INJURY [None]
  - RESPIRATORY FAILURE [None]
  - METABOLIC ACIDOSIS [None]
  - LUNG INFILTRATION [None]
  - ECCHYMOSIS [None]
  - OSTEOMYELITIS [None]
  - ORAL INFECTION [None]
  - DRUG HYPERSENSITIVITY [None]
  - RASH [None]
  - GOUT [None]
